FAERS Safety Report 8281680-X (Version None)
Quarter: 2012Q2

REPORT INFORMATION
  Report Type: 
  Country: None (occurrence: None)
  Receive Date: 20120413
  Receipt Date: 20120404
  Transmission Date: 20120825
  Serious: Yes (Other)
  Sender: FDA-Public Use
  Company Number: CA-JNJFOC-20120402431

PATIENT
  Sex: Female
  Weight: 71 kg

DRUGS (10)
  1. ADVAIR DISKUS 100/50 [Concomitant]
  2. FOLIC ACID [Concomitant]
  3. SYNTHROID [Concomitant]
  4. METHOTREXATE [Concomitant]
  5. PLAQUENIL [Concomitant]
  6. HYDROCHLOROTHIAZIDE [Concomitant]
  7. VENTOLIN [Concomitant]
  8. ZOPICLONE [Concomitant]
  9. REMICADE [Suspect]
     Indication: RHEUMATOID ARTHRITIS
     Dosage: FROM 4 YEARS
     Route: 042
  10. CELEBREX [Concomitant]

REACTIONS (1)
  - KNEE ARTHROPLASTY [None]
